FAERS Safety Report 4638901-1 (Version None)
Quarter: 2005Q2

REPORT INFORMATION
  Report Type: 
  Country: None (occurrence: None)
  Receive Date: 20050419
  Receipt Date: 20050407
  Transmission Date: 20051028
  Serious: Yes (Hospitalization)
  Sender: FDA-Public Use
  Company Number: CH-BRISTOL-MYERS SQUIBB COMPANY-12926580

PATIENT
  Age: 26 Year
  Sex: Female

DRUGS (7)
  1. ZERIT [Suspect]
     Indication: HIV INFECTION
     Route: 048
     Dates: end: 20050101
  2. LAMIVUDINE [Suspect]
     Indication: HIV INFECTION
     Route: 048
     Dates: end: 20050210
  3. VIREAD [Suspect]
     Indication: HIV INFECTION
     Route: 048
     Dates: start: 20050101, end: 20050210
  4. KALETRA [Concomitant]
     Indication: HIV INFECTION
     Route: 048
  5. ANTRA [Concomitant]
     Route: 048
  6. FRAXIPARINE [Concomitant]
     Route: 058
  7. ZOFRAN [Concomitant]
     Route: 048

REACTIONS (2)
  - ABDOMINAL PAIN UPPER [None]
  - GUILLAIN-BARRE SYNDROME [None]
